FAERS Safety Report 11786888 (Version 1)
Quarter: 2015Q4

REPORT INFORMATION
  Report Type: Other
  Country: DE (occurrence: DE)
  Receive Date: 20151130
  Receipt Date: 20151130
  Transmission Date: 20160305
  Serious: Yes (Hospitalization, Other)
  Sender: FDA-Public Use
  Company Number: DE-SHIRE-DE-002054

PATIENT
  Age: 76 Year
  Sex: Male
  Weight: 71 kg

DRUGS (5)
  1. CHOLESTAGEL [Concomitant]
     Active Substance: COLESEVELAM HYDROCHLORIDE
     Indication: PRODUCT USED FOR UNKNOWN INDICATION
     Dosage: 625 MG, 6-7 TIMES DAILY
     Route: 065
  2. TRANSTEC PRO [Concomitant]
     Active Substance: BUPRENORPHINE
     Indication: ANALGESIC THERAPY
     Dosage: 35 MG, CHANGED EVERY 3 DAYS
     Route: 062
  3. URSOFALK [Concomitant]
     Active Substance: URSODIOL
     Indication: PRODUCT USED FOR UNKNOWN INDICATION
     Dosage: 500 MG, 2X/DAY:BID
     Route: 065
  4. REVESTIVE [Suspect]
     Active Substance: TEDUGLUTIDE
     Indication: SHORT-BOWEL SYNDROME
     Route: 058
  5. PARENTERAL [Concomitant]
     Indication: NUTRITIONAL SUPPLEMENTATION
     Dosage: UNK
     Route: 065
     Dates: start: 201207

REACTIONS (3)
  - Vomiting [Recovered/Resolved]
  - Device related infection [Unknown]
  - Pyrexia [Recovered/Resolved]

NARRATIVE: CASE EVENT DATE: 20150602
